FAERS Safety Report 19210063 (Version 2)
Quarter: 2021Q2

REPORT INFORMATION
  Report Type: Report from Study
  Country: CO (occurrence: CO)
  Receive Date: 20210504
  Receipt Date: 20210629
  Transmission Date: 20210717
  Serious: Yes (Other)
  Sender: FDA-Public Use
  Company Number: CO-SA-2021SA144024

PATIENT
  Age: 27 Year
  Sex: Male

DRUGS (5)
  1. METFORMIN [Concomitant]
     Active Substance: METFORMIN HYDROCHLORIDE
     Indication: OVERWEIGHT
     Dosage: UNK, QD
  2. DUPILUMAB [Suspect]
     Active Substance: DUPILUMAB
     Indication: DERMATITIS ATOPIC
     Dosage: 300 MG, QOW
     Route: 058
     Dates: start: 20190614
  3. ACETAMINOPHEN. [Concomitant]
     Active Substance: ACETAMINOPHEN
     Dosage: UNK
  4. NAPROXEN. [Concomitant]
     Active Substance: NAPROXEN
     Dosage: UNK
  5. CEFALEXIN [Concomitant]
     Active Substance: CEPHALEXIN
     Dosage: UNK

REACTIONS (7)
  - Rash [Unknown]
  - Hypersensitivity [Not Recovered/Not Resolved]
  - Nasal inflammation [Recovering/Resolving]
  - Eczema [Unknown]
  - Post procedural haemorrhage [Recovered/Resolved]
  - Dyspnoea [Recovering/Resolving]
  - Stress [Unknown]

NARRATIVE: CASE EVENT DATE: 2021
